FAERS Safety Report 10223404 (Version 1)
Quarter: 2014Q2

REPORT INFORMATION
  Report Type: Spontaneous
  Country: US (occurrence: None)
  Receive Date: 20140606
  Receipt Date: 20140606
  Transmission Date: 20141212
  Serious: Yes (Other)
  Sender: FDA-Public Use
  Company Number: None

PATIENT
  Age: 35 Year
  Sex: Male
  Weight: 73.7 kg

DRUGS (2)
  1. CARFILZOMIB [Suspect]
     Indication: PLASMA CELL MYELOMA
     Route: 042
     Dates: start: 20140410, end: 20140417
  2. IV FLUIDS [Concomitant]

REACTIONS (5)
  - Flushing [None]
  - Chest discomfort [None]
  - Presyncope [None]
  - Wheezing [None]
  - Infusion related reaction [None]
